FAERS Safety Report 10652860 (Version 5)
Quarter: 2015Q1

REPORT INFORMATION
  Report Type: Spontaneous
  Country: US (occurrence: US)
  Receive Date: 20141215
  Receipt Date: 20150121
  Transmission Date: 20150720
  Serious: Yes (Hospitalization, Other)
  Sender: FDA-Public Use
  Company Number: US-UNITED THERAPEUTICS-UNT-2014-011720

PATIENT
  Age: 75 Year
  Sex: Female
  Weight: 77.98 kg

DRUGS (7)
  1. REMODULIN [Suspect]
     Active Substance: TREPROSTINIL
     Dosage: UNK
     Dates: start: 20120614
  2. REMODULIN [Suspect]
     Active Substance: TREPROSTINIL
     Dosage: 0.04975 ?G/KG CONTINUING
     Route: 058
     Dates: start: 20120807
  3. TRACLEER [Concomitant]
     Active Substance: BOSENTAN\BOSENTAN MONOHYDRATE
     Indication: PRODUCT USED FOR UNKNOWN INDICATION
  4. REVATIO [Concomitant]
     Active Substance: SILDENAFIL CITRATE
     Indication: PRODUCT USED FOR UNKNOWN INDICATION
  5. REMODULIN [Suspect]
     Active Substance: TREPROSTINIL
     Indication: PULMONARY ARTERIAL HYPERTENSION
     Dosage: 0.04975 ?G/KG CONTINUING
     Route: 058
     Dates: start: 20120604
  6. REMODULIN [Suspect]
     Active Substance: TREPROSTINIL
     Dosage: 0.04975 ?G/KG CONTINUING
     Route: 058
     Dates: start: 20140820
  7. PRADAXA [Concomitant]
     Active Substance: DABIGATRAN ETEXILATE MESYLATE
     Indication: PRODUCT USED FOR UNKNOWN INDICATION

REACTIONS (4)
  - Hypotension [Unknown]
  - Hip fracture [Unknown]
  - Pulmonary arterial hypertension [Unknown]
  - Fall [Unknown]

NARRATIVE: CASE EVENT DATE: 201411
